FAERS Safety Report 12616643 (Version 1)
Quarter: 2016Q3

REPORT INFORMATION
  Report Type: Spontaneous
  Country: AT (occurrence: AT)
  Receive Date: 20160802
  Receipt Date: 20160802
  Transmission Date: 20161109
  Serious: Yes (Death)
  Sender: FDA-Public Use
  Company Number: AT-ALLERGAN-1639597

PATIENT
  Age: 49 Year
  Sex: Male

DRUGS (2)
  1. SUCRALFATE UNK [Suspect]
     Active Substance: SUCRALFATE
     Indication: PROPHYLAXIS
     Dosage: 6 G, QD
     Dates: start: 19880122, end: 19880804
  2. ADALAT [Concomitant]
     Active Substance: NIFEDIPINE
     Indication: PRODUCT USED FOR UNKNOWN INDICATION
     Dosage: UNK
     Route: 050

REACTIONS (3)
  - Gastrointestinal hypomotility [Unknown]
  - Pneumonia aspiration [Fatal]
  - Bezoar [Unknown]

NARRATIVE: CASE EVENT DATE: 1988
